FAERS Safety Report 17265729 (Version 4)
Quarter: 2021Q2

REPORT INFORMATION
  Report Type: Spontaneous
  Country: US (occurrence: US)
  Receive Date: 20200114
  Receipt Date: 20210518
  Transmission Date: 20210716
  Serious: Yes (Hospitalization, Other)
  Sender: FDA-Public Use
  Company Number: US-ELI_LILLY_AND_COMPANY-US202001004157

PATIENT
  Age: 44 Year
  Sex: Female

DRUGS (2)
  1. HUMULIN R [Suspect]
     Active Substance: INSULIN HUMAN
     Indication: PRODUCT USED FOR UNKNOWN INDICATION
     Dosage: 171.3 U, UNKNOWN
     Route: 058
     Dates: start: 2018
  2. HUMULIN R [Suspect]
     Active Substance: INSULIN HUMAN
     Dosage: 171.3 U, UNKNOWN
     Route: 058

REACTIONS (9)
  - Nephrolithiasis [Unknown]
  - Blood glucose increased [Unknown]
  - Blood glucose abnormal [Unknown]
  - Sepsis [Recovered/Resolved]
  - Visual impairment [Unknown]
  - Blood disorder [Unknown]
  - Kidney infection [Recovered/Resolved]
  - Thrombosis [Unknown]
  - Dyspnoea [Unknown]

NARRATIVE: CASE EVENT DATE: 202101
